FAERS Safety Report 8952891 (Version 3)
Quarter: 2013Q2

REPORT INFORMATION
  Report Type: Spontaneous
  Country: JP (occurrence: JP)
  Receive Date: 20121203
  Receipt Date: 20130614
  Transmission Date: 20140414
  Serious: Yes (Life-Threatening, Hospitalization)
  Sender: FDA-Public Use
  Company Number: JP-009507513-1211JPN012816

PATIENT
  Age: 68 Year
  Sex: Male
  Weight: 65 kg

DRUGS (7)
  1. BRIDION INTRAVENOUS 200MG [Suspect]
     Indication: NEUROMUSCULAR BLOCKADE REVERSAL
     Dosage: 200 MG, ONCE
     Route: 042
     Dates: start: 20121024, end: 20121024
  2. ESLAX [Concomitant]
     Indication: NEUROMUSCULAR BLOCKING THERAPY
     Dosage: 70 MG, ONCE
     Route: 042
     Dates: start: 20121024, end: 20121024
  3. SEVOFLURANE [Concomitant]
     Indication: GENERAL ANAESTHESIA
     Dosage: 70 ML, ONCE
     Route: 055
     Dates: start: 20121024, end: 20121024
  4. ULTIVA [Concomitant]
     Indication: GENERAL ANAESTHESIA
     Dosage: 2.4 MG, PRECISION CONTINUOUS DRIP INFUSION
     Route: 042
     Dates: start: 20121024, end: 20121024
  5. DIPRIVAN [Concomitant]
     Indication: GENERAL ANAESTHESIA
     Dosage: 100 MG, ONCE
     Route: 042
     Dates: start: 20121024, end: 20121024
  6. FENTANYL [Concomitant]
     Indication: GENERAL ANAESTHESIA
     Dosage: 0.1 MG, ONCE
     Route: 042
     Dates: start: 20121024, end: 20121024
  7. EPHEDRINE HYDROCHLORIDE [Concomitant]
     Indication: GENERAL ANAESTHESIA
     Dosage: 12 MG, UNK(8+4MG)
     Route: 042
     Dates: start: 20121024, end: 20121024

REACTIONS (3)
  - Ventricular fibrillation [Recovered/Resolved]
  - Cardio-respiratory arrest [Recovered/Resolved]
  - Anaphylactoid reaction [Recovered/Resolved]
